FAERS Safety Report 8891641 (Version 1)
Quarter: 2012Q4

REPORT INFORMATION
  Report Type: 
  Country: US (occurrence: US)
  Receive Date: 20121107
  Receipt Date: 20121107
  Transmission Date: 20130627
  Serious: No
  Sender: FDA-Public Use
  Company Number: US-AMGEN-USASP2011048521

PATIENT
  Age: 48 Year
  Sex: Female

DRUGS (1)
  1. ENBREL [Suspect]
     Indication: PSORIASIS
     Dosage: 50 mg, qwk
     Dates: start: 20110409, end: 201108

REACTIONS (5)
  - Contusion [Recovered/Resolved]
  - Oedema peripheral [Recovered/Resolved]
  - Joint swelling [Recovered/Resolved]
  - Pain in extremity [Recovered/Resolved]
  - Arthralgia [Recovered/Resolved]
